FAERS Safety Report 21078993 (Version 4)
Quarter: 2022Q4

REPORT INFORMATION
  Report Type: Spontaneous
  Country: JP (occurrence: JP)
  Receive Date: 20220713
  Receipt Date: 20221017
  Transmission Date: 20230113
  Serious: Yes (Hospitalization)
  Sender: FDA-Public Use
  Company Number: JP-Eisai-202204374_LEN-EC_P_1

PATIENT
  Age: 44 Year
  Sex: Female
  Weight: 85 kg

DRUGS (4)
  1. LENVIMA [Suspect]
     Active Substance: LENVATINIB
     Indication: Endometrial cancer
     Route: 048
     Dates: start: 20220530, end: 20220630
  2. LENVIMA [Suspect]
     Active Substance: LENVATINIB
     Dosage: DOSE AND FREQUENCY UNKNOWN
     Route: 048
     Dates: start: 2022
  3. KEYTRUDA [Suspect]
     Active Substance: PEMBROLIZUMAB
     Indication: Endometrial cancer
     Route: 041
     Dates: start: 20220530, end: 20220530
  4. KEYTRUDA [Suspect]
     Active Substance: PEMBROLIZUMAB
     Dosage: DOSE AND FREQUENCY UNKNOWN
     Route: 041
     Dates: start: 2022

REACTIONS (1)
  - Thyrotoxic crisis [Recovering/Resolving]

NARRATIVE: CASE EVENT DATE: 20220701
